FAERS Safety Report 20216360 (Version 1)
Quarter: 2021Q4

REPORT INFORMATION
  Report Type: Spontaneous
  Country: US (occurrence: None)
  Receive Date: 20211221
  Receipt Date: 20211221
  Transmission Date: 20220303
  Serious: Yes (Hospitalization)
  Sender: FDA-Public Use
  Company Number: None

PATIENT
  Sex: Male

DRUGS (6)
  1. NOVOSEVEN RT [Suspect]
     Active Substance: COAGULATION FACTOR VIIA RECOMBINANT HUMAN
     Indication: Factor VIII deficiency
     Dosage: FREQUENCY : AS DIRECTED; NOVOSEVE 5000 MCG/VIAL 10 VAISLS INFUSE 2 VIALS 10,000 MCG TOTAL INTRAVENOU
     Route: 042
     Dates: start: 20211123
  2. MONOJECT PHARMA GRADE FLU [Concomitant]
  3. NORMAL SALINE I.V. FLUSH [Concomitant]
  4. NOVOSEVEN RT [Concomitant]
     Active Substance: COAGULATION FACTOR VIIA RECOMBINANT HUMAN
  5. SODIUM CHLORIDE [Concomitant]
     Active Substance: SODIUM CHLORIDE
  6. SODIUM CHLORIDE [Concomitant]
     Active Substance: SODIUM CHLORIDE
     Dates: start: 20211123

REACTIONS (2)
  - Injury [None]
  - Haemorrhage [None]

NARRATIVE: CASE EVENT DATE: 20211101
